FAERS Safety Report 18232061 (Version 2)
Quarter: 2020Q3

REPORT INFORMATION
  Report Type: Report from Study
  Country: JP (occurrence: JP)
  Receive Date: 20200904
  Receipt Date: 20200922
  Transmission Date: 20201103
  Serious: Yes (Life-Threatening, Other)
  Sender: FDA-Public Use
  Company Number: JP-ASTELLAS-2020JP012247

PATIENT
  Age: 68 Year
  Sex: Female
  Weight: 57 kg

DRUGS (31)
  1. LEVOFLOXACIN HEMIHYDRATE [Concomitant]
     Active Substance: LEVOFLOXACIN
     Dosage: UNK UNK, UNKNOWN FREQ.
     Route: 048
     Dates: start: 20200820
  2. OLOPATADINE HYDROCHLORIDE OD [Concomitant]
     Indication: RHINITIS ALLERGIC
     Route: 048
     Dates: start: 20160322, end: 20200819
  3. HUMULIN R [Concomitant]
     Active Substance: INSULIN HUMAN
     Indication: PROPHYLAXIS
     Dosage: 24 DF/DAY, UNKNOWN FREQ.
     Route: 041
     Dates: start: 20200808, end: 20200917
  4. ACELIO [Concomitant]
     Active Substance: ACETAMINOPHEN
     Indication: FEBRILE NEUTROPENIA
     Dosage: 500 MG, AS NEEDED, AT THE TIME OF FEVER
     Route: 042
     Dates: start: 20200810, end: 20200914
  5. NEOPHAGEN [CYSTEINE;GLYCINE;GLYCYRRHIZIC ACID] [Concomitant]
     Indication: HEPATIC FUNCTION ABNORMAL
     Route: 042
     Dates: start: 20200823, end: 20200914
  6. ADONA [CARBAZOCHROME SODIUM SULFONATE] [Concomitant]
     Active Substance: CARBAZOCHROME SODIUM SULFONATE
     Indication: ENTEROCOLITIS
     Dosage: 100 MG/DAY, UNKNOWN FREQ., MIXED WITH ELNEOPA NF NO.1
     Route: 042
     Dates: start: 20200826, end: 20200913
  7. FEBURIC [Concomitant]
     Active Substance: FEBUXOSTAT
     Indication: PROPHYLAXIS
     Route: 048
     Dates: start: 20200731, end: 20200822
  8. ELNEOPA NF NO.1 [Concomitant]
     Indication: DECREASED APPETITE
     Dosage: 80 ML/H CONTINUOUS ADMINISTRATION, UNKNOWN FREQ.
     Route: 041
     Dates: start: 20200808, end: 20200917
  9. MEROPENEM. [Concomitant]
     Active Substance: MEROPENEM
     Indication: FEBRILE NEUTROPENIA
     Route: 041
     Dates: start: 20200823, end: 20200907
  10. ASP2215 [Suspect]
     Active Substance: GILTERITINIB
     Indication: ACUTE MYELOID LEUKAEMIA
     Route: 048
     Dates: start: 20200810, end: 20200822
  11. CEFEPIME DIHYDROCHLORIDE [Concomitant]
     Active Substance: CEFEPIME HYDROCHLORIDE
     Indication: FEBRILE NEUTROPENIA
     Route: 042
     Dates: start: 20200810, end: 20200819
  12. FILGRASTIM BS [FILGRASTIM BIOSIMILAR 1] [Concomitant]
     Indication: FEBRILE NEUTROPENIA
     Route: 042
     Dates: start: 20200827, end: 20200914
  13. INTRALIPOS [Concomitant]
     Active Substance: SOYBEAN OIL
     Indication: DECREASED APPETITE
     Route: 042
     Dates: start: 20200828, end: 20200914
  14. LEVOFLOXACIN HEMIHYDRATE [Concomitant]
     Active Substance: LEVOFLOXACIN
     Indication: PRODUCT USED FOR UNKNOWN INDICATION
     Dosage: UNK UNK, UNKNOWN FREQ.
     Route: 048
  15. IDARUBICIN HYDROCHLORIDE. [Concomitant]
     Active Substance: IDARUBICIN HYDROCHLORIDE
     Indication: PRODUCT USED FOR UNKNOWN INDICATION
     Dosage: UNK UNK, UNKNOWN FREQ.
     Route: 065
  16. CYTARABINE. [Suspect]
     Active Substance: CYTARABINE
     Dosage: CONSOLIDATION THERAPY: DAY1, DAY3, DAY5 WAS 1.5 G/M2, TWICE DAILY
     Route: 042
     Dates: start: 20200803, end: 20200809
  17. CANCIDAS [Concomitant]
     Active Substance: CASPOFUNGIN ACETATE
     Indication: FEBRILE NEUTROPENIA
     Route: 041
     Dates: start: 20200821, end: 20200911
  18. VANCOMYCIN [Concomitant]
     Active Substance: VANCOMYCIN
     Indication: FEBRILE NEUTROPENIA
     Route: 042
     Dates: start: 20200813, end: 20200819
  19. LIMAPROST ALFADEX [Concomitant]
     Active Substance: LIMAPROST
     Indication: LUMBAR SPINAL STENOSIS
     Route: 048
     Dates: end: 20200819
  20. SODIUM CHLORIDE. [Concomitant]
     Active Substance: SODIUM CHLORIDE
     Indication: HYPONATRAEMIA
     Dosage: 20 ML/DAY, UNKNOWN FREQ., MIXED WITH ELNEOPA NF NO.1
     Route: 042
     Dates: start: 20200821, end: 20200917
  21. ACOALAN [Concomitant]
     Indication: HEPATIC FUNCTION ABNORMAL
     Dosage: 24 IU/DAY, UNKNOWN FREQ., MIXED WITH ELNEOPA NF NO.1
     Route: 042
     Dates: start: 20200824, end: 20200907
  22. TEICOPLANIN [Concomitant]
     Active Substance: TEICOPLANIN
     Indication: FEBRILE NEUTROPENIA
     Route: 041
     Dates: start: 20200829, end: 20200909
  23. CYTARABINE. [Suspect]
     Active Substance: CYTARABINE
     Indication: ACUTE MYELOID LEUKAEMIA
     Dosage: INDUCTION THERAPY: 100 MG/M2, ONCE DAILY
     Route: 042
     Dates: start: 20200803, end: 20200809
  24. SENNOSIDE [SENNOSIDE A+B] [Concomitant]
     Active Substance: SENNOSIDES A AND B
     Indication: CONSTIPATION
     Route: 048
     Dates: start: 20190404, end: 20200823
  25. FLUCONAZOLE. [Concomitant]
     Active Substance: FLUCONAZOLE
     Indication: INFECTION PROPHYLAXIS
     Route: 048
     Dates: start: 20200731, end: 20200822
  26. ROSUVASTATIN OD [Concomitant]
     Indication: HYPERLIPIDAEMIA
     Route: 048
     Dates: start: 20200731, end: 20200819
  27. POTASSIUM CHLORIDE. [Concomitant]
     Active Substance: POTASSIUM CHLORIDE
     Indication: HYPOCALCAEMIA
     Dosage: 20 ML/DAY, UNKNOWN FREQ., MIXED WITH ELNEOPA NF NO.1
     Route: 042
     Dates: start: 20200824, end: 20200914
  28. HUMAN SERUM ALBUMIN [Concomitant]
     Active Substance: ALBUMIN HUMAN
     Indication: HEPATIC FUNCTION ABNORMAL
     Dosage: 24 IU/DAY, UNKNOWN FREQ., MIXED WITH ELNEOPA NF NO.1
     Route: 042
     Dates: start: 20200824, end: 20200915
  29. VOLTAREN [Concomitant]
     Active Substance: DICLOFENAC SODIUM
     Indication: LUMBAR SPINAL STENOSIS
     Route: 048
     Dates: end: 20200819
  30. LANSOPRAZOLE. [Concomitant]
     Active Substance: LANSOPRAZOLE
     Indication: GASTROOESOPHAGEAL REFLUX DISEASE
     Route: 048
     Dates: start: 20200731, end: 20200822
  31. LASIX [Concomitant]
     Active Substance: FUROSEMIDE
     Indication: WEIGHT INCREASED
     Dosage: UNK UNK, UNKNOWN FREQ.
     Route: 042
     Dates: start: 20200803, end: 20200907

REACTIONS (2)
  - Cardiac failure [Recovering/Resolving]
  - Hepatic function abnormal [Recovering/Resolving]

NARRATIVE: CASE EVENT DATE: 20200818
